FAERS Safety Report 8376728-8 (Version None)
Quarter: 2012Q2

REPORT INFORMATION
  Report Type: 
  Country: None (occurrence: None)
  Receive Date: 20120522
  Receipt Date: 20120510
  Transmission Date: 20120825
  Serious: No
  Sender: FDA-Public Use
  Company Number: US-ASTRAZENECA-2012SE30773

PATIENT
  Age: 42 Year
  Sex: Male

DRUGS (1)
  1. SEROQUEL [Suspect]
     Indication: SCHIZOPHRENIA, PARANOID TYPE
     Dosage: GENERIC
     Route: 048

REACTIONS (2)
  - HEART RATE INCREASED [None]
  - ADVERSE DRUG REACTION [None]
